FAERS Safety Report 4596709-X (Version None)
Quarter: 2005Q1

REPORT INFORMATION
  Report Type: 
  Country: None (occurrence: None)
  Receive Date: 20050228
  Receipt Date: 20050214
  Transmission Date: 20050727
  Serious: Yes (Death)
  Sender: FDA-Public Use
  Company Number: HQWYE336014FEB05

PATIENT
  Age: 34 Year
  Sex: Male

DRUGS (3)
  1. TAZOCIN (PIPERACILLIN/TAXOBACTAM, INJECTION) [Suspect]
     Indication: SEPTIC SHOCK
     Dosage: 4.5 G 1X PER 6 HR INTRAVENOUS
     Route: 042
  2. AMOXICILLIN [Concomitant]
  3. CLARITHROMYCIN [Concomitant]

REACTIONS (2)
  - DISEASE PROGRESSION [None]
  - SEPTIC SHOCK [None]
